FAERS Safety Report 9199907 (Version 2)
Quarter: 2013Q2

REPORT INFORMATION
  Report Type: Spontaneous
  Country: US (occurrence: US)
  Receive Date: 20130329
  Receipt Date: 20130418
  Transmission Date: 20140414
  Serious: No
  Sender: FDA-Public Use
  Company Number: US-JNJFOC-20130314201

PATIENT
  Sex: Female

DRUGS (3)
  1. INVEGA SUSTENNA [Suspect]
     Indication: SCHIZOPHRENIA
     Route: 030
     Dates: start: 2012, end: 201209
  2. INVEGA SUSTENNA [Suspect]
     Indication: SCHIZOPHRENIA
     Route: 030
     Dates: start: 201209
  3. INVEGA SUSTENNA [Suspect]
     Indication: SCHIZOPHRENIA
     Dosage: ABOUT 200 MG
     Route: 030
     Dates: start: 2012, end: 2012

REACTIONS (4)
  - Malaise [Not Recovered/Not Resolved]
  - Drug dose omission [Not Recovered/Not Resolved]
  - Schizophrenia [Not Recovered/Not Resolved]
  - Adverse event [Recovered/Resolved]
